FAERS Safety Report 15681879 (Version 2)
Quarter: 2020Q1

REPORT INFORMATION
  Report Type: Report from Study
  Country: RO (occurrence: RO)
  Receive Date: 20181203
  Receipt Date: 20200304
  Transmission Date: 20200409
  Serious: Yes (Other)
  Sender: FDA-Public Use
  Company Number: PHHY2018RO173329

PATIENT
  Age: 13 Year
  Sex: Male

DRUGS (1)
  1. SOMATROPIN. [Suspect]
     Active Substance: SOMATROPIN
     Indication: GROWTH HORMONE DEFICIENCY
     Dosage: 0.032 OT, UNK
     Route: 058
     Dates: start: 20131209

REACTIONS (2)
  - Adrenal insufficiency [Not Recovered/Not Resolved]
  - Neurofibromatosis [Not Recovered/Not Resolved]

NARRATIVE: CASE EVENT DATE: 20181105
